FAERS Safety Report 20821415 (Version 1)
Quarter: 2022Q2

REPORT INFORMATION
  Report Type: Spontaneous
  Country: US (occurrence: US)
  Receive Date: 20220512
  Receipt Date: 20220512
  Transmission Date: 20220721
  Serious: No
  Sender: FDA-Public Use
  Company Number: US-PFIZER INC-202200461758

PATIENT
  Age: 61 Year
  Sex: Male
  Weight: 77.11 kg

DRUGS (4)
  1. XELJANZ [Suspect]
     Active Substance: TOFACITINIB CITRATE
     Indication: Colitis ulcerative
     Dosage: 10 MG, 2X/DAY, (10 MG OF XELJANZ AT 8 AM AND 10 MG AT 8 PM)
     Route: 048
  2. XELJANZ [Suspect]
     Active Substance: TOFACITINIB CITRATE
     Dosage: 20 MG, 1X/DAY, (20 MG AT 8 AM)
  3. CYCLOBENZAPRINE [Concomitant]
     Active Substance: CYCLOBENZAPRINE
     Dosage: UNK
  4. PREBIOTICS NOS [Concomitant]
     Dosage: UNK

REACTIONS (2)
  - Accidental overdose [Unknown]
  - Drug ineffective [Unknown]
